FAERS Safety Report 7216150-0 (Version None)
Quarter: 2011Q1

REPORT INFORMATION
  Report Type: 
  Country: None (occurrence: None)
  Receive Date: 20110107
  Receipt Date: 20101215
  Transmission Date: 20110831
  Serious: No
  Sender: FDA-Public Use
  Company Number: US-B.I. PHARMACEUTICALS,INC./RIDGEFIELD-2010-BP-14784BP

PATIENT
  Age: 54 Year
  Sex: Male

DRUGS (1)
  1. PRADAXA [Suspect]
     Indication: ATRIAL FIBRILLATION
     Dosage: 300 MG
     Route: 048
     Dates: start: 20101202

REACTIONS (4)
  - WEIGHT INCREASED [None]
  - NASOPHARYNGITIS [None]
  - ABDOMINAL PAIN UPPER [None]
  - ATRIAL FIBRILLATION [None]
